FAERS Safety Report 5724596-2 (Version None)
Quarter: 2008Q2

REPORT INFORMATION
  Report Type: 
  Country: None (occurrence: None)
  Receive Date: 20080428
  Receipt Date: 20080415
  Transmission Date: 20081010
  Serious: Yes (Other)
  Sender: FDA-Public Use
  Company Number: 80863

PATIENT
  Age: 30 Year
  Sex: Female

DRUGS (1)
  1. ALVESCO [Suspect]
     Indication: ASTHMA
     Dosage: 1 TIME (S) 160 UG INHALATION
     Route: 055
     Dates: start: 20080301, end: 20080301

REACTIONS (1)
  - ANGINA PECTORIS [None]
